FAERS Safety Report 6930914-X (Version None)
Quarter: 2010Q3

REPORT INFORMATION
  Report Type: 
  Country: None (occurrence: None)
  Receive Date: 20100818
  Receipt Date: 20100806
  Transmission Date: 20110219
  Serious: Yes (Other)
  Sender: FDA-Public Use
  Company Number: US-PFIZER INC-2010099971

PATIENT
  Sex: Female
  Weight: 81.633 kg

DRUGS (5)
  1. LYRICA [Suspect]
     Indication: NEUROMA
     Dosage: 75 MG, 2X/DAY
     Route: 048
     Dates: start: 20100520
  2. HYDROCHLOROTHIAZIDE [Concomitant]
     Indication: HYPERTENSION
     Dosage: UNK
  3. BIOFLAVONOIDS [Concomitant]
     Dosage: 500 MG, UNK
  4. SYNTHROID [Concomitant]
     Dosage: UNK
  5. WARFARIN SODIUM [Concomitant]
     Dosage: UNK

REACTIONS (3)
  - MUSCULAR WEAKNESS [None]
  - PAIN IN EXTREMITY [None]
  - SWELLING [None]
